FAERS Safety Report 24815475 (Version 2)
Quarter: 2025Q1

REPORT INFORMATION
  Report Type: Spontaneous
  Country: IT (occurrence: IT)
  Receive Date: 20250107
  Receipt Date: 20250117
  Transmission Date: 20250409
  Serious: Yes (Life-Threatening)
  Sender: MYLAN
  Company Number: None

PATIENT
  Age: 8 Day
  Sex: Male

DRUGS (4)
  1. DEXMEDETOMIDINE [Suspect]
     Active Substance: DEXMEDETOMIDINE
     Indication: Sedation complication
     Route: 042
     Dates: start: 20241208, end: 20241209
  2. CAFFEINE CITRATE [Concomitant]
     Active Substance: CAFFEINE CITRATE
     Indication: Prophylaxis
     Dosage: 10 MILLIGRAM/KILOGRAM, QD (10 MG/KG EVERY 24 HOURS)
     Route: 042
  3. FENTANYL [Concomitant]
     Active Substance: FENTANYL
     Indication: Sedative therapy
     Route: 042
     Dates: start: 20241201
  4. NITRIC OXIDE [Concomitant]
     Active Substance: NITRIC OXIDE
     Indication: Newborn persistent pulmonary hypertension
     Route: 055
     Dates: start: 20241201

REACTIONS (3)
  - Neonatal hypotension [Recovering/Resolving]
  - Neonatal anuria [Recovering/Resolving]
  - Off label use [Unknown]

NARRATIVE: CASE EVENT DATE: 20241208
